FAERS Safety Report 12732858 (Version 2)
Quarter: 2016Q4

REPORT INFORMATION
  Report Type: Spontaneous
  Country: FR (occurrence: FR)
  Receive Date: 20160912
  Receipt Date: 20161028
  Transmission Date: 20170207
  Serious: Yes (Other)
  Sender: FDA-Public Use
  Company Number: FR-VIFOR (INTERNATIONAL) INC.-VIT-2016-05037

PATIENT
  Age: 50 Year
  Sex: Female
  Weight: 53 kg

DRUGS (13)
  1. TEMERIT [Concomitant]
     Active Substance: NEBIVOLOL
  2. LASILIX [Concomitant]
     Active Substance: FUROSEMIDE
  3. KARDEGIC [Concomitant]
     Active Substance: ASPIRIN LYSINE
     Dates: start: 20150122
  4. PROGRAF [Concomitant]
     Active Substance: TACROLIMUS\TACROLIMUS ANHYDROUS
     Indication: IMMUNOSUPPRESSANT DRUG THERAPY
     Route: 048
     Dates: start: 20160404
  5. HUMALOG MIX75/25 [Concomitant]
     Active Substance: INSULIN LISPRO
     Dates: start: 20150122
  6. VENOFER [Suspect]
     Active Substance: IRON SUCROSE
     Indication: PRODUCT USED FOR UNKNOWN INDICATION
  7. INSULIN PORCINE [Concomitant]
     Active Substance: INSULIN DEFALAN (PORCINE)
  8. MEPILEX TRANSFER [Concomitant]
     Dates: start: 20160102
  9. INEXIUM [Concomitant]
     Active Substance: ESOMEPRAZOLE
     Route: 048
     Dates: start: 20150622
  10. LUTERAN [Concomitant]
     Active Substance: CHLORMADINONE ACETATE
     Dates: start: 20150122
  11. LANTUS SOLOSTAR [Concomitant]
     Active Substance: INSULIN GLARGINE
  12. UVEDOSE [Concomitant]
     Active Substance: CHOLECALCIFEROL
     Dates: start: 20150122
  13. VELPHORO [Suspect]
     Active Substance: FERRIC OXYHYDROXIDE
     Indication: HYPERPHOSPHATAEMIA
     Route: 048
     Dates: start: 20160531, end: 20160722

REACTIONS (3)
  - Dermatitis bullous [Not Recovered/Not Resolved]
  - Pseudoporphyria [Not Recovered/Not Resolved]
  - Porphyria non-acute [Unknown]

NARRATIVE: CASE EVENT DATE: 20160704
